FAERS Safety Report 15401538 (Version 1)
Quarter: 2018Q3

REPORT INFORMATION
  Report Type: Spontaneous
  Country: US (occurrence: US)
  Receive Date: 20180919
  Receipt Date: 20180919
  Transmission Date: 20181010
  Serious: No
  Sender: FDA-Public Use
  Company Number: US-PFIZER INC-2017390941

PATIENT
  Age: 58 Year
  Sex: Female
  Weight: 122.47 kg

DRUGS (2)
  1. CORTEF [Suspect]
     Active Substance: HYDROCORTISONE
     Dosage: UNK
  2. CORTEF [Suspect]
     Active Substance: HYDROCORTISONE
     Indication: ADRENAL DISORDER
     Dosage: 60 MG, DAILY(2 EACH BETWEEN 4?6AM, 2 EACH BETWEEN 10AM?12PM AND 2 BETWEEN 2?4PM)

REACTIONS (2)
  - Intentional product use issue [Unknown]
  - Fatigue [Unknown]

NARRATIVE: CASE EVENT DATE: 201703
